FAERS Safety Report 12612298 (Version 4)
Quarter: 2016Q4

REPORT INFORMATION
  Report Type: Report from Study
  Country: BR (occurrence: BR)
  Receive Date: 20160801
  Receipt Date: 20161222
  Transmission Date: 20170207
  Serious: Yes (Death, Life-Threatening, Hospitalization, Other)
  Sender: FDA-Public Use
  Company Number: PHHY2016BR103679

PATIENT
  Age: 61 Year
  Sex: Male
  Weight: 82 kg

DRUGS (7)
  1. VOTRIENT [Suspect]
     Active Substance: PAZOPANIB HYDROCHLORIDE
     Indication: RENAL CANCER
     Dosage: 400 MG, UNK
     Route: 065
     Dates: start: 201508
  2. MORPHINE [Concomitant]
     Active Substance: MORPHINE
     Indication: PAIN
     Dosage: 30 MG, UNK
     Route: 065
  3. GABAPENTIN. [Concomitant]
     Active Substance: GABAPENTIN
     Indication: PRODUCT USED FOR UNKNOWN INDICATION
     Route: 065
  4. ASA [Concomitant]
     Active Substance: ASPIRIN
     Indication: PRODUCT USED FOR UNKNOWN INDICATION
     Route: 065
  5. ASPIRIN//ACETYLSALICYLIC ACID [Concomitant]
     Active Substance: ASPIRIN
     Indication: PRODUCT USED FOR UNKNOWN INDICATION
     Route: 065
  6. ZOMETA [Suspect]
     Active Substance: ZOLEDRONIC ACID
     Indication: PRODUCT USED FOR UNKNOWN INDICATION
     Route: 042
  7. VOTRIENT [Suspect]
     Active Substance: PAZOPANIB HYDROCHLORIDE
     Dosage: 2 DF (2 TABLETS OF 400 MG A DAY AT 6 IN MORNING)
     Route: 048

REACTIONS (24)
  - Movement disorder [Unknown]
  - Eating disorder [Unknown]
  - Metastases to bone [Unknown]
  - Dysentery [Unknown]
  - Arthralgia [Unknown]
  - Blood test abnormal [Unknown]
  - Apparent death [Unknown]
  - Malaise [Unknown]
  - Abasia [Unknown]
  - Anaemia [Unknown]
  - Pneumonia [Unknown]
  - Metastasis [Unknown]
  - Dehydration [Unknown]
  - Respiratory disorder [Unknown]
  - Dyspnoea [Unknown]
  - Diplegia [Unknown]
  - Syncope [Unknown]
  - Renal cancer [Fatal]
  - Blood pressure fluctuation [Unknown]
  - Vomiting [Unknown]
  - Drug ineffective [Unknown]
  - Malignant neoplasm progression [Unknown]
  - Bone pain [Unknown]
  - Pyrexia [Recovered/Resolved]

NARRATIVE: CASE EVENT DATE: 20161120
